FAERS Safety Report 16164560 (Version 5)
Quarter: 2021Q3

REPORT INFORMATION
  Report Type: Spontaneous
  Country: CA (occurrence: CA)
  Receive Date: 20190405
  Receipt Date: 20210809
  Transmission Date: 20211014
  Serious: Yes (Death, Other)
  Sender: FDA-Public Use
  Company Number: CA-009507513-1904CAN001814

PATIENT
  Age: 61 Year
  Sex: Male

DRUGS (12)
  1. PIPERACILLIN SODIUM;TAZOBACTAM SODIUM [Suspect]
     Active Substance: PIPERACILLIN SODIUM\TAZOBACTAM SODIUM
     Indication: ABDOMINAL INFECTION
     Dosage: UNK
     Route: 065
  2. FLUCONAZOLE. [Suspect]
     Active Substance: FLUCONAZOLE
     Indication: ABDOMINAL INFECTION
     Dosage: DOSAGE FORM: NOT SPECIFED
     Route: 065
  3. FLUCONAZOLE. [Suspect]
     Active Substance: FLUCONAZOLE
     Indication: PSEUDOMONAS INFECTION
  4. PIPERACILLIN SODIUM;TAZOBACTAM SODIUM [Suspect]
     Active Substance: PIPERACILLIN SODIUM\TAZOBACTAM SODIUM
     Indication: PSEUDOMONAS INFECTION
  5. PIPERACILLIN SODIUM;TAZOBACTAM SODIUM [Suspect]
     Active Substance: PIPERACILLIN SODIUM\TAZOBACTAM SODIUM
     Indication: STAPHYLOCOCCAL INFECTION
  6. COLISTIN [Suspect]
     Active Substance: COLISTIN
     Indication: STAPHYLOCOCCAL INFECTION
  7. CUBICIN [Suspect]
     Active Substance: DAPTOMYCIN
     Indication: ABDOMINAL INFECTION
     Dosage: POWDER FOR SOLUTION INTRAVENOUS
     Route: 065
  8. CUBICIN [Suspect]
     Active Substance: DAPTOMYCIN
     Indication: PSEUDOMONAS INFECTION
     Dosage: POWDER FOR SOLUTION FOR INFUSION
     Route: 065
  9. CUBICIN [Suspect]
     Active Substance: DAPTOMYCIN
     Indication: STAPHYLOCOCCAL INFECTION
  10. FLUCONAZOLE. [Suspect]
     Active Substance: FLUCONAZOLE
     Indication: STAPHYLOCOCCAL INFECTION
  11. COLISTIN [Suspect]
     Active Substance: COLISTIN
     Indication: ABDOMINAL INFECTION
     Dosage: DOSAGE FORM: NOT SPECIFIED
     Route: 065
  12. COLISTIN [Suspect]
     Active Substance: COLISTIN
     Indication: PSEUDOMONAS INFECTION

REACTIONS (4)
  - Surgery [Fatal]
  - Multiple-drug resistance [Fatal]
  - Renal failure [Fatal]
  - Infection [Fatal]
